FAERS Safety Report 6520112-6 (Version None)
Quarter: 2009Q4

REPORT INFORMATION
  Report Type: 
  Country: None (occurrence: None)
  Receive Date: 20091229
  Receipt Date: 20091217
  Transmission Date: 20100525
  Serious: Yes (Hospitalization)
  Sender: FDA-Public Use
  Company Number: PHHY2009JP53626

PATIENT
  Sex: Male
  Weight: 73 kg

DRUGS (8)
  1. DIOVAN [Suspect]
     Dosage: 80 MG, QD
     Route: 048
     Dates: start: 20080115, end: 20080214
  2. DIOVAN [Suspect]
     Dosage: 160 MG, QD
     Dates: start: 20080215, end: 20080820
  3. DIOVAN [Suspect]
     Dosage: 80 MG, QD
     Dates: start: 20080821, end: 20081225
  4. CALBLOCK [Suspect]
     Dosage: 16 MG, QD
     Dates: start: 20080815, end: 20080820
  5. CALBLOCK [Suspect]
     Dosage: 8 MG, QD
     Dates: start: 20080821
  6. TENORMIN [Concomitant]
     Dosage: 25 MG, QD
     Route: 048
     Dates: start: 20080411
  7. PENFILL N [Concomitant]
     Dosage: 32 IU, UNK
     Route: 058
     Dates: start: 20051116
  8. PENFILL R [Concomitant]
     Dosage: 12 IU, UNK
     Route: 058
     Dates: start: 20051116

REACTIONS (5)
  - BLOOD PRESSURE DECREASED [None]
  - BLOOD UREA INCREASED [None]
  - DIZZINESS [None]
  - DRUG EFFECT DECREASED [None]
  - LOSS OF CONSCIOUSNESS [None]
